FAERS Safety Report 9522919 (Version 2)
Quarter: 2013Q4

REPORT INFORMATION
  Report Type: Spontaneous
  Country: JP (occurrence: JP)
  Receive Date: 20130913
  Receipt Date: 20131106
  Transmission Date: 20140711
  Serious: Yes (Hospitalization)
  Sender: FDA-Public Use
  Company Number: JP-JNJFOC-20130907406

PATIENT
  Age: 77 Year
  Sex: Female
  Weight: 51 kg

DRUGS (3)
  1. XARELTO [Suspect]
     Indication: ATRIAL FIBRILLATION
     Route: 048
     Dates: start: 20130604
  2. XARELTO [Suspect]
     Indication: EMBOLIC STROKE
     Route: 048
     Dates: start: 20130604
  3. AMLODIN [Concomitant]
     Indication: HYPERTENSION
     Route: 048
     Dates: start: 20130608

REACTIONS (1)
  - Cerebral infarction [Recovering/Resolving]
